FAERS Safety Report 5762953-9 (Version None)
Quarter: 2008Q2

REPORT INFORMATION
  Report Type: 
  Country: None (occurrence: None)
  Receive Date: 20080522
  Receipt Date: 20080522
  Transmission Date: 20081010
  Serious: Yes (Hospitalization)
  Sender: FDA-Public Use
  Company Number: None

PATIENT
  Age: 45 Year
  Sex: Female
  Weight: 99.7913 kg

DRUGS (2)
  1. CIPRO [Suspect]
     Indication: OTITIS EXTERNA
     Dosage: 500 MG Q 12 H PO
     Route: 048
     Dates: start: 20080517, end: 20080518
  2. CIPRO [Suspect]
     Indication: OTITIS MEDIA
     Dosage: 500 MG Q 12 H PO
     Route: 048
     Dates: start: 20080517, end: 20080518

REACTIONS (8)
  - DIPLOPIA [None]
  - HALLUCINATION, VISUAL [None]
  - NEUROLOGICAL SYMPTOM [None]
  - PARANOIA [None]
  - PETIT MAL EPILEPSY [None]
  - SENSORY LOSS [None]
  - SUICIDAL IDEATION [None]
  - VERTIGO [None]
